FAERS Safety Report 9619325 (Version 1)
Quarter: 2013Q4

REPORT INFORMATION
  Report Type: Spontaneous
  Country: RU (occurrence: RU)
  Receive Date: 20131014
  Receipt Date: 20131014
  Transmission Date: 20140711
  Serious: Yes (Other)
  Sender: FDA-Public Use
  Company Number: RU-BAYER-2013-119113

PATIENT
  Age: 30 Year
  Sex: Female

DRUGS (3)
  1. YAZ [Suspect]
     Indication: HORMONE THERAPY
  2. VALTREX [Interacting]
     Indication: HERPES SIMPLEX
  3. CYCLOFERON [Interacting]
     Indication: HERPES SIMPLEX

REACTIONS (4)
  - Salpingo-oophoritis [Unknown]
  - Herpes simplex [Not Recovered/Not Resolved]
  - Impaired healing [None]
  - Drug interaction [None]
